FAERS Safety Report 8130237-X (Version None)
Quarter: 2012Q1

REPORT INFORMATION
  Report Type: 
  Country: None (occurrence: None)
  Receive Date: 20120210
  Receipt Date: 20120202
  Transmission Date: 20120608
  Serious: Yes (Other)
  Sender: FDA-Public Use
  Company Number: PHEH2012US002394

PATIENT
  Sex: Female
  Weight: 119.4 kg

DRUGS (1)
  1. GILENYA [Suspect]
     Indication: MULTIPLE SCLEROSIS
     Dosage: 0.5 MG, QD
     Route: 048
     Dates: start: 20120116

REACTIONS (4)
  - SWELLING FACE [None]
  - EYE SWELLING [None]
  - PERIORBITAL OEDEMA [None]
  - THROAT TIGHTNESS [None]
